FAERS Safety Report 19736338 (Version 1)
Quarter: 2021Q3

REPORT INFORMATION
  Report Type: Spontaneous
  Country: US (occurrence: US)
  Receive Date: 20210823
  Receipt Date: 20210823
  Transmission Date: 20211014
  Serious: No
  Sender: FDA-Public Use
  Company Number: US-CELGENEUS-USA-20210804420

PATIENT
  Age: 30 Year
  Sex: Female

DRUGS (2)
  1. ZEPOSIA [Suspect]
     Active Substance: OZANIMOD HYDROCHLORIDE
     Indication: COLITIS ULCERATIVE
     Dosage: .46 MILLIGRAM TITRATION PACK
     Route: 048
     Dates: start: 202108
  2. ZEPOSIA [Suspect]
     Active Substance: OZANIMOD HYDROCHLORIDE
     Dosage: .92 MILLIGRAM TITRATION PACK
     Route: 048
     Dates: start: 202108, end: 20210814

REACTIONS (2)
  - Palpitations [Unknown]
  - Hypertension [Unknown]

NARRATIVE: CASE EVENT DATE: 202108
